FAERS Safety Report 15251606 (Version 1)
Quarter: 2018Q3

REPORT INFORMATION
  Report Type: Spontaneous
  Country: MT (occurrence: MT)
  Receive Date: 20180807
  Receipt Date: 20180807
  Transmission Date: 20181010
  Serious: Yes (Hospitalization)
  Sender: FDA-Public Use
  Company Number: MT-UNICHEM PHARMACEUTICALS (USA) INC-UCM201807-000186

PATIENT
  Age: 31 Year
  Sex: Female

DRUGS (5)
  1. IBUPROFEN. [Suspect]
     Active Substance: IBUPROFEN
  2. PERINDOPRIL [Suspect]
     Active Substance: PERINDOPRIL
  3. AMLODIPINE [Suspect]
     Active Substance: AMLODIPINE BESYLATE
  4. PARACETAMOL [Suspect]
     Active Substance: ACETAMINOPHEN
  5. CAFFEINE. [Suspect]
     Active Substance: CAFFEINE

REACTIONS (8)
  - Vomiting [Unknown]
  - Hypocalcaemia [Unknown]
  - Tachypnoea [Unknown]
  - Metabolic acidosis [Unknown]
  - Confusional state [Unknown]
  - Overdose [Unknown]
  - Tachycardia [Unknown]
  - Hypotension [Recovering/Resolving]
